FAERS Safety Report 12056900 (Version 3)
Quarter: 2016Q1

REPORT INFORMATION
  Report Type: Spontaneous
  Country: US (occurrence: US)
  Receive Date: 20160209
  Receipt Date: 20160218
  Transmission Date: 20160526
  Serious: No
  Sender: FDA-Public Use
  Company Number: US-BAYER-2016-025388

PATIENT
  Age: 45 Year
  Sex: Female

DRUGS (1)
  1. MIRENA [Suspect]
     Active Substance: LEVONORGESTREL
     Indication: CONTRACEPTION
     Dosage: 20 MCG/24HR, CONT
     Route: 015
     Dates: start: 20160111, end: 20160202

REACTIONS (7)
  - Vaginal haemorrhage [None]
  - Back pain [None]
  - Feeling abnormal [None]
  - Pelvic pain [None]
  - Abdominal discomfort [None]
  - Abdominal pain lower [None]
  - Product quality issue [None]

NARRATIVE: CASE EVENT DATE: 20160114
